FAERS Safety Report 5975732-4 (Version None)
Quarter: 2008Q4

REPORT INFORMATION
  Report Type: 
  Country: None (occurrence: None)
  Receive Date: 20081202
  Receipt Date: 20081120
  Transmission Date: 20090506
  Serious: Yes (Disabling)
  Sender: FDA-Public Use
  Company Number: US-WYE-H06046308

PATIENT
  Sex: Female
  Weight: 56.75 kg

DRUGS (5)
  1. PRISTIQ [Suspect]
     Indication: DEPRESSION
     Route: 048
     Dates: start: 20080701
  2. PRISTIQ [Suspect]
     Route: 048
     Dates: start: 20080101, end: 20080901
  3. PRISTIQ [Suspect]
     Route: 048
     Dates: start: 20080901
  4. PROTONIX [Concomitant]
     Indication: GASTROOESOPHAGEAL REFLUX DISEASE
     Route: 048
     Dates: start: 20080301
  5. IMITREX [Concomitant]
     Indication: MIGRAINE
     Dosage: 100 MG PRN
     Route: 048
     Dates: start: 20080101

REACTIONS (2)
  - CONDITION AGGRAVATED [None]
  - MIGRAINE [None]
